FAERS Safety Report 6033753-X (Version None)
Quarter: 2009Q1

REPORT INFORMATION
  Report Type: 
  Country: None (occurrence: None)
  Receive Date: 20090111
  Receipt Date: 20081001
  Transmission Date: 20090719
  Serious: Yes (Other)
  Sender: FDA-Public Use
  Company Number: BR-BAYER-200818819LA

PATIENT
  Sex: Female

DRUGS (1)
  1. YAZ [Suspect]
     Indication: ORAL CONTRACEPTION
     Route: 048
     Dates: start: 20080801

REACTIONS (4)
  - ABORTION SPONTANEOUS [None]
  - NAUSEA [None]
  - NO ADVERSE EVENT [None]
  - PREGNANCY ON ORAL CONTRACEPTIVE [None]
